FAERS Safety Report 6479681-7 (Version None)
Quarter: 2009Q4

REPORT INFORMATION
  Report Type: 
  Country: None (occurrence: None)
  Receive Date: 20091208
  Receipt Date: 20091204
  Transmission Date: 20100525
  Serious: Yes (Death)
  Sender: FDA-Public Use
  Company Number: DK-ASTRAZENECA-2009SE30348

PATIENT
  Age: 78 Year
  Sex: Female

DRUGS (2)
  1. SELOZOK [Suspect]
     Indication: TACHYCARDIA
     Route: 048
  2. VERAPAMIL [Concomitant]
     Indication: TACHYCARDIA

REACTIONS (2)
  - CARDIAC ARREST [None]
  - CIRCULATORY COLLAPSE [None]
